FAERS Safety Report 20574283 (Version 3)
Quarter: 2022Q2

REPORT INFORMATION
  Report Type: Spontaneous
  Country: SK (occurrence: SK)
  Receive Date: 20220309
  Receipt Date: 20220614
  Transmission Date: 20220721
  Serious: Yes (Hospitalization, Other)
  Sender: FDA-Public Use
  Company Number: SK-BAYER-2022A031503

PATIENT
  Age: 45 Year
  Sex: Male

DRUGS (3)
  1. XOFIGO [Suspect]
     Active Substance: RADIUM RA-223 DICHLORIDE
     Indication: Hormone-refractory prostate cancer
     Dosage: UNK
     Dates: start: 20211124, end: 20211124
  2. XOFIGO [Suspect]
     Active Substance: RADIUM RA-223 DICHLORIDE
     Indication: Metastases to bone
     Dosage: UNK
     Dates: start: 20211220, end: 20211220
  3. XOFIGO [Suspect]
     Active Substance: RADIUM RA-223 DICHLORIDE
     Indication: Hormone-refractory prostate cancer
     Dosage: UNK
     Dates: start: 20220203, end: 20220203

REACTIONS (7)
  - Anaemia [None]
  - Thrombocytopenia [None]
  - Pyrexia [None]
  - Urinary retention [None]
  - Hydronephrosis [None]
  - Ureteral stent insertion [None]
  - General physical health deterioration [None]

NARRATIVE: CASE EVENT DATE: 20220120
